FAERS Safety Report 9774479 (Version 1)
Quarter: 2013Q4

REPORT INFORMATION
  Report Type: Spontaneous
  Country: US (occurrence: US)
  Receive Date: 20131220
  Receipt Date: 20131220
  Transmission Date: 20140711
  Serious: No
  Sender: FDA-Public Use
  Company Number: US-BAXTER-2013BAX050732

PATIENT
  Sex: 0

DRUGS (1)
  1. TISSEEL VH S/D [Suspect]
     Indication: DURAL TEAR
     Route: 061

REACTIONS (1)
  - Pain in extremity [Unknown]
